FAERS Safety Report 4578378-8 (Version None)
Quarter: 2005Q1

REPORT INFORMATION
  Report Type: 
  Country: None (occurrence: None)
  Receive Date: 20050209
  Receipt Date: 20050121
  Transmission Date: 20050727
  Serious: Yes (Hospitalization, Other)
  Sender: FDA-Public Use
  Company Number: US_0501111545

PATIENT
  Age: 57 Year
  Sex: Female

DRUGS (22)
  1. FORTEO [Suspect]
     Indication: OSTEOPOROSIS
     Dosage: 20 UG DAY
     Dates: start: 20040801
  2. ACTOS [Concomitant]
  3. GLYNASE [Concomitant]
  4. LASXIX (FUROSEMIDE) [Concomitant]
  5. NOVOLOG [Concomitant]
  6. LANTUS [Concomitant]
  7. ATROPINE SULFATE [Concomitant]
  8. NASACORT AQ (TRIAMCINOLONE ACETONIDE) [Concomitant]
  9. ALLEGRA-D [Concomitant]
  10. SYNTHROID [Concomitant]
  11. AGGRENOX [Concomitant]
  12. VITAMIN E [Concomitant]
  13. FOLIC ACID [Concomitant]
  14. PRILOSEC (OMEPRAZOLE RATIOPHARM) [Concomitant]
  15. CARAFATE [Concomitant]
  16. LOVENOX [Concomitant]
  17. VIOXX [Concomitant]
  18. GLUCOSAMINE CHONDROITIN [Concomitant]
  19. ASPIRIN [Concomitant]
  20. ACTONEL [Concomitant]
  21. TAMOXIFEN CITRATE [Concomitant]
  22. OSCAL 500-D [Concomitant]

REACTIONS (7)
  - BACK PAIN [None]
  - FALL [None]
  - FEMUR FRACTURE [None]
  - FIBULA FRACTURE [None]
  - IMPAIRED HEALING [None]
  - PHARMACEUTICAL PRODUCT COMPLAINT [None]
  - RIB FRACTURE [None]
